FAERS Safety Report 19131805 (Version 1)
Quarter: 2021Q2

REPORT INFORMATION
  Report Type: Spontaneous
  Country: FR (occurrence: FR)
  Receive Date: 20210414
  Receipt Date: 20210414
  Transmission Date: 20210717
  Serious: Yes (Hospitalization)
  Sender: FDA-Public Use
  Company Number: NVSC2021FR079189

PATIENT
  Age: 86 Year
  Sex: Female

DRUGS (9)
  1. ATORVASTATIN [Interacting]
     Active Substance: ATORVASTATIN
     Indication: DYSLIPIDAEMIA
     Dosage: 20 MG, QD (0?0?1)
     Route: 048
     Dates: start: 20200901
  2. RISPERIDONE. [Concomitant]
     Active Substance: RISPERIDONE
     Indication: PSYCHOTIC DISORDER
     Dosage: 1 MG, QD (0?0?1)
     Route: 048
     Dates: start: 20200901
  3. MIRTAZAPINE. [Concomitant]
     Active Substance: MIRTAZAPINE
     Indication: DEPRESSION
     Dosage: 45 MG, QD (0?0?3)
     Route: 048
     Dates: start: 20200901
  4. FLUDROCORTISONE [Concomitant]
     Active Substance: FLUDROCORTISONE
     Indication: PRODUCT USED FOR UNKNOWN INDICATION
     Dosage: 50 UG, QD (1?0?0)
     Route: 048
     Dates: start: 20200901
  5. FUROSEMIDE. [Suspect]
     Active Substance: FUROSEMIDE
     Indication: MYOCARDIAL ISCHAEMIA
     Dosage: 20 MG, QD (1?0?0)
     Route: 048
     Dates: start: 20201026
  6. SPIRONOLACTONE. [Interacting]
     Active Substance: SPIRONOLACTONE
     Indication: MYOCARDIAL ISCHAEMIA
     Dosage: 25 MG, QD (1?0?0)
     Route: 048
     Dates: start: 20201026
  7. BISOPROLOL [Concomitant]
     Active Substance: BISOPROLOL
     Indication: MYOCARDIAL ISCHAEMIA
     Dosage: 1.25 MG, QD (1?0?0)
     Route: 048
     Dates: start: 20201026
  8. IMOVANE [Concomitant]
     Active Substance: ZOPICLONE
     Indication: INSOMNIA
     Dosage: 3.75 MG, QD (0?0?1)
     Route: 048
     Dates: start: 20200901
  9. ELIQUIS [Suspect]
     Active Substance: APIXABAN
     Indication: ATRIAL FIBRILLATION
     Dosage: 10 MG, QD (1?0?1)
     Route: 048
     Dates: start: 20201026, end: 20210318

REACTIONS (1)
  - Subdural haematoma [Not Recovered/Not Resolved]

NARRATIVE: CASE EVENT DATE: 20210326
